FAERS Safety Report 8960736 (Version 2)
Quarter: 2012Q4

REPORT INFORMATION
  Report Type: 
  Country: BR (occurrence: BR)
  Receive Date: 20121213
  Receipt Date: 20121217
  Transmission Date: 20130627
  Serious: Yes (Life-Threatening, Hospitalization)
  Sender: FDA-Public Use
  Company Number: PHHY2012BR114488

PATIENT
  Age: 85 Year
  Sex: Female

DRUGS (6)
  1. EXELON PATCH [Suspect]
     Indication: NERVOUS SYSTEM DISORDER
     Dosage: 4.6 mg daily (9 mg/ 5 cm2)
     Route: 062
  2. EXELON PATCH [Suspect]
     Dosage: 9.5 mg daily (18mg/10cm2)
     Route: 062
  3. EXELON PATCH [Suspect]
     Dosage: 13.3 mg daily (27mg/15cm2 per 24 hours)
     Route: 062
     Dates: end: 20121203
  4. DIOVAN HCT [Suspect]
     Indication: BLOOD PRESSURE
     Dosage: 1 DF (160 mg val/ 25 mg HCt) QD
     Dates: end: 20121203
  5. TOCOPHEROL [Concomitant]
     Indication: DEPRESSED LEVEL OF CONSCIOUSNESS
     Dosage: 1 DF, daily
  6. CITALOPRAM [Concomitant]
     Indication: DEPRESSION
     Dosage: 2 DF, daily

REACTIONS (7)
  - Coma [Not Recovered/Not Resolved]
  - Sleep inertia [Not Recovered/Not Resolved]
  - Sleep disorder [Not Recovered/Not Resolved]
  - Cystitis [Not Recovered/Not Resolved]
  - Dysentery [Recovering/Resolving]
  - Movement disorder [Not Recovered/Not Resolved]
  - Dehydration [Recovering/Resolving]
